FAERS Safety Report 8759806 (Version 1)
Quarter: 2012Q4

REPORT INFORMATION
  Report Type: 
  Country: DK (occurrence: DK)
  Receive Date: 20120829
  Receipt Date: 20120829
  Transmission Date: 20130627
  Serious: Yes (Death)
  Sender: FDA-Public Use
  Company Number: DK-ASTRAZENECA-2012SE64891

PATIENT
  Age: 36 Year
  Sex: Female
  Weight: 75 kg

DRUGS (10)
  1. CODEIN [Concomitant]
     Dosage: 0.11 MG/KG
  2. ARIPIPRAZOL [Concomitant]
     Dosage: 0.37 MG/KG
  3. SEROQUEL [Suspect]
     Indication: SCHIZOPHRENIA, PARANOID TYPE
     Dosage: 1.0 MG/KG
     Route: 048
  4. RIVOTRIL [Suspect]
     Dosage: 7-AMLNO: 0.23 MG/KG
     Route: 065
  5. CITALOPRAM [Suspect]
     Dosage: 0.57 MG/KG. CITALOPRAM, DEMETHYL 0.30 MG/KG
     Route: 065
  6. TRAMADOL [Suspect]
     Indication: PAIN
     Dosage: 0.85 MG/KG . TRAMADOL, 0-DESMETHYL: 0.085MG/DL
     Route: 065
  7. IBUPROFEN [Concomitant]
     Dosage: 2 MG/KG
  8. SALICYLSYRE [Concomitant]
     Dosage: 10 MG/KG
  9. OMEPRAZOL TEVA [Concomitant]
     Indication: ULCER
  10. BIPERIDEN [Concomitant]
     Dosage: 0.027 MG/KG

REACTIONS (1)
  - Toxicity to various agents [Fatal]
